FAERS Safety Report 9071540 (Version 1)
Quarter: 2013Q1

REPORT INFORMATION
  Report Type: Report from Study
  Country: US (occurrence: US)
  Receive Date: 20130129
  Receipt Date: 20130129
  Transmission Date: 20140127
  Serious: Yes (Hospitalization)
  Sender: FDA-Public Use
  Company Number: US-ROCHE-1183318

PATIENT
  Sex: Female

DRUGS (1)
  1. VALCYTE [Suspect]
     Indication: LUNG TRANSPLANT
     Route: 048

REACTIONS (2)
  - Sinusitis [Unknown]
  - Respiratory tract infection [Unknown]
